FAERS Safety Report 20352269 (Version 1)
Quarter: 2022Q1

REPORT INFORMATION
  Report Type: Spontaneous
  Country: US (occurrence: None)
  Receive Date: 20220118
  Receipt Date: 20220118
  Transmission Date: 20220424
  Serious: Yes (Death)
  Sender: FDA-Public Use
  Company Number: None

PATIENT
  Sex: Male

DRUGS (7)
  1. DEXAMETHASONE [Suspect]
     Active Substance: DEXAMETHASONE
     Indication: Thyroid cancer
  2. MEKINIST [Suspect]
     Active Substance: TRAMETINIB DIMETHYL SULFOXIDE
  3. OXYCODONE [Suspect]
     Active Substance: OXYCODONE
  4. PEPCID AC [Suspect]
     Active Substance: FAMOTIDINE
  5. TAFINLAR [Suspect]
     Active Substance: DABRAFENIB MESYLATE
  6. TRAMADOL [Suspect]
     Active Substance: TRAMADOL
  7. OXYCODONE [Concomitant]
     Active Substance: OXYCODONE

REACTIONS (1)
  - Death [None]
